FAERS Safety Report 13494714 (Version 1)
Quarter: 2017Q2

REPORT INFORMATION
  Report Type: Spontaneous
  Country: US (occurrence: US)
  Receive Date: 20170428
  Receipt Date: 20170428
  Transmission Date: 20170830
  Serious: Yes (Life-Threatening, Hospitalization, Other)
  Sender: FDA-Public Use
  Company Number: US-TORRENT-00002704

PATIENT
  Age: 14 Year
  Sex: Female

DRUGS (3)
  1. BUPROPION. [Suspect]
     Active Substance: BUPROPION
  2. VENLAFAXINE [Suspect]
     Active Substance: VENLAFAXINE HYDROCHLORIDE
  3. CYCLOBENZAPRINE. [Suspect]
     Active Substance: CYCLOBENZAPRINE

REACTIONS (9)
  - Atelectasis [Recovering/Resolving]
  - Serotonin syndrome [Recovering/Resolving]
  - Leukocytosis [Recovering/Resolving]
  - Unresponsive to stimuli [Recovering/Resolving]
  - Decorticate posture [Recovering/Resolving]
  - Intentional product misuse [Recovering/Resolving]
  - Generalised tonic-clonic seizure [Recovering/Resolving]
  - Encephalopathy [Recovering/Resolving]
  - Anaemia [Recovering/Resolving]

NARRATIVE: CASE EVENT DATE: 201504
